FAERS Safety Report 10670783 (Version 1)
Quarter: 2014Q4

REPORT INFORMATION
  Report Type: Spontaneous
  Country: NO (occurrence: NO)
  Receive Date: 20141223
  Receipt Date: 20141223
  Transmission Date: 20150529
  Serious: Yes (Other)
  Sender: FDA-Public Use
  Company Number: NO-JNJFOC-20141213606

PATIENT
  Age: 42 Year
  Sex: Female
  Weight: 75 kg

DRUGS (4)
  1. MAREVAN [Interacting]
     Active Substance: WARFARIN SODIUM
     Indication: HEART VALVE REPLACEMENT
     Route: 048
     Dates: start: 201003
  2. OLYSIO [Suspect]
     Active Substance: SIMEPREVIR
     Indication: CHRONIC HEPATITIS C
     Route: 048
     Dates: start: 20140910
  3. SOVALDI [Interacting]
     Active Substance: SOFOSBUVIR
     Indication: CHRONIC HEPATITIS C
     Route: 048
  4. INSULIN [Concomitant]
     Active Substance: INSULIN NOS
     Indication: DIABETES MELLITUS
     Route: 058

REACTIONS (2)
  - Drug interaction [Unknown]
  - International normalised ratio decreased [Recovering/Resolving]

NARRATIVE: CASE EVENT DATE: 20141007
